FAERS Safety Report 9189202 (Version 1)
Quarter: 2013Q1

REPORT INFORMATION
  Report Type: Spontaneous
  Country: DE (occurrence: None)
  Receive Date: 20130322
  Receipt Date: 20130322
  Transmission Date: 20140127
  Serious: Yes (Death, Other)
  Sender: FDA-Public Use
  Company Number: GER/GER/13/0028516

PATIENT
  Age: 57 Year
  Sex: Female
  Weight: 72 kg

DRUGS (5)
  1. GEMCITABINE (GEMCITABINE) [Suspect]
     Indication: PANCREATIC CARCINOMA
     Route: 042
     Dates: start: 20120906, end: 201302
  2. KREON )PANCREATIN) [Concomitant]
  3. BISOPROLOL (BISOPROLOL) [Concomitant]
  4. TAZOBAC (PIP/TAZO) [Concomitant]
  5. ROCEPHIN (CEFTRIAXONE SODIUM) [Concomitant]

REACTIONS (8)
  - Cardiac failure acute [None]
  - Renal failure acute [None]
  - Thrombocytopenia [None]
  - Microangiopathic haemolytic anaemia [None]
  - Haemolysis [None]
  - Cardiac arrest [None]
  - Pulse absent [None]
  - Dyspnoea [None]
